FAERS Safety Report 4975255-5 (Version None)
Quarter: 2006Q2

REPORT INFORMATION
  Report Type: 
  Country: None (occurrence: None)
  Receive Date: 20060418
  Receipt Date: 20050125
  Transmission Date: 20061013
  Serious: Yes (Hospitalization)
  Sender: FDA-Public Use
  Company Number: US-MERCK-0501USA04118

PATIENT
  Age: 56 Year
  Sex: Female
  Weight: 74 kg

DRUGS (18)
  1. VIOXX [Suspect]
     Indication: ARTHRITIS
     Route: 048
     Dates: start: 20030801, end: 20040201
  2. VIOXX [Suspect]
     Route: 048
     Dates: start: 20040401, end: 20040601
  3. PLAVIX [Concomitant]
     Route: 065
  4. ACETAMINOPHEN [Concomitant]
     Route: 065
  5. ASPIRIN [Concomitant]
     Route: 065
  6. AMOXICILLIN [Concomitant]
     Route: 065
  7. ZOCOR [Concomitant]
     Route: 048
  8. ACETAMINOPHEN AND PROPOXYPHENE NAPSYLATE [Concomitant]
     Route: 065
  9. NITROQUICK [Concomitant]
     Route: 065
  10. FOSAMAX [Concomitant]
     Route: 048
  11. SYNTHROID [Concomitant]
     Route: 065
  12. NEXIUM [Concomitant]
     Route: 065
  13. AMBIEN [Concomitant]
     Route: 065
  14. DIMETAPP (NEW FORMULA) [Concomitant]
     Route: 048
  15. CIPRO [Concomitant]
     Route: 065
  16. CARDIZEM [Concomitant]
     Route: 065
  17. ALTACE [Concomitant]
     Route: 065
  18. LEVAQUIN [Concomitant]
     Route: 065

REACTIONS (10)
  - ANGINA UNSTABLE [None]
  - BRONCHITIS [None]
  - CARDIOVASCULAR DISORDER [None]
  - CEREBROVASCULAR ACCIDENT [None]
  - EAR PAIN [None]
  - EMOTIONAL DISTRESS [None]
  - INJURY [None]
  - MYOCARDIAL INFARCTION [None]
  - MYOCARDIAL ISCHAEMIA [None]
  - SINUSITIS [None]
